FAERS Safety Report 4774728-8 (Version None)
Quarter: 2005Q3

REPORT INFORMATION
  Report Type: 
  Country: None (occurrence: None)
  Receive Date: 20050921
  Receipt Date: 20050915
  Transmission Date: 20060218
  Serious: Yes (Other)
  Sender: FDA-Public Use
  Company Number: CA-GLAXOSMITHKLINE-A0574943A

PATIENT
  Age: 40 Year
  Sex: Female

DRUGS (8)
  1. WELLBUTRIN SR [Suspect]
     Indication: DRUG USE FOR UNKNOWN INDICATION
     Route: 048
  2. SEROQUEL [Suspect]
     Indication: DRUG USE FOR UNKNOWN INDICATION
     Route: 065
  3. CLONAZEPAM [Suspect]
     Indication: DRUG USE FOR UNKNOWN INDICATION
     Route: 065
  4. CITALOPRAM [Suspect]
     Indication: DRUG USE FOR UNKNOWN INDICATION
     Route: 065
  5. SEROQUEL [Suspect]
     Route: 065
  6. ALCOHOL [Concomitant]
  7. RANITIDINE [Concomitant]
  8. THYROID TAB [Concomitant]

REACTIONS (3)
  - HYPOTENSION [None]
  - PUPILLARY REFLEX IMPAIRED [None]
  - TACHYCARDIA [None]
